FAERS Safety Report 10537772 (Version 1)
Quarter: 2014Q4

REPORT INFORMATION
  Report Type: Spontaneous
  Country: TR (occurrence: TR)
  Receive Date: 20141023
  Receipt Date: 20141023
  Transmission Date: 20150529
  Serious: Yes (Hospitalization, Other)
  Sender: FDA-Public Use
  Company Number: TR-UCBSA-2014015294

PATIENT
  Age: 48 Year
  Sex: Male

DRUGS (18)
  1. KEPPRA [Suspect]
     Active Substance: LEVETIRACETAM
     Dosage: 2000 MG
  2. VALPROIC ACID. [Concomitant]
     Active Substance: VALPROIC ACID
     Dosage: 2000
  3. VALPROIC ACID. [Concomitant]
     Active Substance: VALPROIC ACID
     Dosage: 2000 MG/DAY, UNK
  4. LYRICA [Concomitant]
     Active Substance: PREGABALIN
  5. REMERON [Concomitant]
     Active Substance: MIRTAZAPINE
     Indication: SEIZURE
  6. ZONISAMIDE. [Concomitant]
     Active Substance: ZONISAMIDE
     Dosage: 400 MG/DAY
  7. CARBAMAZEPINE. [Concomitant]
     Active Substance: CARBAMAZEPINE
     Dosage: 1200
  8. TOPIRAMATE. [Concomitant]
     Active Substance: TOPIRAMATE
     Indication: SEIZURE
     Dosage: 300
  9. OXCARBAZEPINE. [Concomitant]
     Active Substance: OXCARBAZEPINE
     Indication: SEIZURE
     Dosage: 1800
  10. ZONISAMIDE. [Concomitant]
     Active Substance: ZONISAMIDE
     Indication: SEIZURE
     Dosage: 300
  11. CARBAMAZEPINE. [Concomitant]
     Active Substance: CARBAMAZEPINE
     Indication: SEIZURE
     Dosage: 1600
  12. TOPIRAMATE. [Concomitant]
     Active Substance: TOPIRAMATE
     Dosage: 500
  13. KEPPRA [Suspect]
     Active Substance: LEVETIRACETAM
     Indication: SEIZURE
     Dosage: UNK
  14. VALPROIC ACID. [Concomitant]
     Active Substance: VALPROIC ACID
     Indication: SEIZURE
     Dosage: 1500
  15. VALPROIC ACID. [Concomitant]
     Active Substance: VALPROIC ACID
     Dosage: 1500
  16. PREGABALIN. [Concomitant]
     Active Substance: PREGABALIN
     Indication: SEIZURE
     Dosage: 450
  17. PREGABALIN. [Concomitant]
     Active Substance: PREGABALIN
     Dosage: 225 MG
  18. OXCARBAZEPINE. [Concomitant]
     Active Substance: OXCARBAZEPINE
     Dosage: 1500 MG/ DAY

REACTIONS (6)
  - Diabetes mellitus [Unknown]
  - Subarachnoid haemorrhage [Unknown]
  - Seizure [Unknown]
  - Hypertension [Unknown]
  - Traumatic haematoma [Unknown]
  - Partial seizures [Unknown]

NARRATIVE: CASE EVENT DATE: 201002
